FAERS Safety Report 4987260-3 (Version None)
Quarter: 2006Q2

REPORT INFORMATION
  Report Type: 
  Country: None (occurrence: None)
  Receive Date: 20060501
  Receipt Date: 20060112
  Transmission Date: 20061013
  Serious: Yes (Hospitalization, Disabling)
  Sender: FDA-Public Use
  Company Number: US-MERCK-0601USA01568

PATIENT
  Age: 52 Year
  Sex: Female
  Weight: 91 kg

DRUGS (8)
  1. VIOXX [Suspect]
     Indication: OSTEOARTHRITIS
     Route: 048
     Dates: start: 20000320, end: 20010506
  2. SYNTHROID [Concomitant]
     Route: 065
  3. GEMFIBROZIL [Concomitant]
     Route: 065
  4. TOPROL-XL [Concomitant]
     Route: 065
  5. NITROQUICK [Concomitant]
     Route: 065
  6. ASPIRIN [Concomitant]
     Route: 065
  7. LIPITOR [Concomitant]
     Route: 065
  8. NORVASC [Concomitant]
     Route: 065

REACTIONS (8)
  - ACUTE CORONARY SYNDROME [None]
  - ATRIOVENTRICULAR BLOCK FIRST DEGREE [None]
  - CHEST PAIN [None]
  - DIABETES MELLITUS [None]
  - DRUG HYPERSENSITIVITY [None]
  - DYSLIPIDAEMIA [None]
  - MYOCARDIAL INFARCTION [None]
  - ROAD TRAFFIC ACCIDENT [None]
